FAERS Safety Report 12717748 (Version 2)
Quarter: 2016Q4

REPORT INFORMATION
  Report Type: Report from Study
  Country: CA (occurrence: CA)
  Receive Date: 20160906
  Receipt Date: 20161115
  Transmission Date: 20170207
  Serious: Yes (Hospitalization)
  Sender: FDA-Public Use
  Company Number: CA-BIOGEN-2016BI00285949

PATIENT
  Age: 58 Year
  Sex: Male

DRUGS (4)
  1. TECFIDERA [Suspect]
     Active Substance: DIMETHYL FUMARATE
     Route: 048
     Dates: start: 20160818, end: 20160825
  2. TECFIDERA [Suspect]
     Active Substance: DIMETHYL FUMARATE
     Indication: MULTIPLE SCLEROSIS
     Dosage: STARTING DOSE (AS PER MD ORDER)
     Route: 048
     Dates: start: 20160811, end: 20160817
  3. PRINIVIL [Concomitant]
     Active Substance: LISINOPRIL
     Indication: PRODUCT USED FOR UNKNOWN INDICATION
     Route: 065
  4. TECFIDERA [Suspect]
     Active Substance: DIMETHYL FUMARATE
     Dosage: 120MG X 2 IN AM, 120MG X 1 IN PM AS PER MD ORDER
     Route: 048
     Dates: start: 20160826, end: 20160826

REACTIONS (4)
  - Ventricular tachycardia [Recovered/Resolved]
  - Prescribed underdose [Recovered/Resolved]
  - Arteriosclerosis coronary artery [Recovered/Resolved]
  - Myocardial infarction [Not Recovered/Not Resolved]

NARRATIVE: CASE EVENT DATE: 20160811
